FAERS Safety Report 21626479 (Version 1)
Quarter: 2022Q4

REPORT INFORMATION
  Report Type: Spontaneous
  Country: US (occurrence: None)
  Receive Date: 20221122
  Receipt Date: 20221122
  Transmission Date: 20230112
  Serious: No
  Sender: FDA-Public Use
  Company Number: US-ROCHE-3161831

PATIENT
  Sex: Female
  Weight: 58.112 kg

DRUGS (1)
  1. LUCENTIS [Suspect]
     Active Substance: RANIBIZUMAB
     Indication: Eye disorder
     Route: 050

REACTIONS (4)
  - Eye haemorrhage [Recovered/Resolved]
  - Off label use [Unknown]
  - Eye swelling [Unknown]
  - Lacrimation increased [Unknown]
